FAERS Safety Report 17450405 (Version 1)
Quarter: 2020Q1

REPORT INFORMATION
  Report Type: Spontaneous
  Country: DE (occurrence: DE)
  Receive Date: 20200224
  Receipt Date: 20200224
  Transmission Date: 20200409
  Serious: Yes (Hospitalization)
  Sender: FDA-Public Use
  Company Number: NVSC2020DE044103

PATIENT
  Age: 32 Month
  Sex: Male
  Weight: 13 kg

DRUGS (1)
  1. LEVETIRACETAM. [Suspect]
     Active Substance: LEVETIRACETAM
     Indication: EPILEPSY
     Dosage: 360 MG, QD (EVERY DAYS 2 SEPARATED DOSES)
     Route: 048

REACTIONS (4)
  - Anticonvulsant drug level decreased [Unknown]
  - Seizure [Unknown]
  - Product administration error [Unknown]
  - Personality change [Unknown]

NARRATIVE: CASE EVENT DATE: 20181228
